FAERS Safety Report 4987952-6 (Version None)
Quarter: 2006Q2

REPORT INFORMATION
  Report Type: 
  Country: None (occurrence: None)
  Receive Date: 20060501
  Receipt Date: 20060425
  Transmission Date: 20061013
  Serious: Yes (Hospitalization)
  Sender: FDA-Public Use
  Company Number: NL-BOEHRINGER INGELHEIM PHARMACEUTICALS, INC.-2006-NL-00118NL

PATIENT
  Sex: Female

DRUGS (2)
  1. MICARDIS [Suspect]
     Indication: HYPERTENSION
     Dates: start: 20051101, end: 20051201
  2. CONTRACEPTIVE [Concomitant]
     Route: 048

REACTIONS (3)
  - HEPATIC STEATOSIS [None]
  - HEPATITIS [None]
  - HEPATITIS TOXIC [None]
